FAERS Safety Report 9711463 (Version 2)
Quarter: 2013Q4

REPORT INFORMATION
  Report Type: Spontaneous
  Country: US (occurrence: US)
  Receive Date: 20131126
  Receipt Date: 20131126
  Transmission Date: 20140711
  Serious: No
  Sender: FDA-Public Use
  Company Number: US-BRISTOL-MYERS SQUIBB COMPANY-18752907

PATIENT
  Age: 59 Year
  Sex: Female

DRUGS (3)
  1. BYDUREON [Suspect]
     Indication: TYPE 2 DIABETES MELLITUS
     Dosage: NO OF INJ:6
     Route: 058
     Dates: start: 20130221
  2. METFORMIN HCL TABS [Concomitant]
     Dosage: 2 TABS
     Route: 048
  3. JANUVIA [Concomitant]
     Dosage: 100MG ONE HALF TABLET
     Route: 048

REACTIONS (6)
  - Injection site reaction [Unknown]
  - Injection site bruising [Unknown]
  - Blood glucose increased [Recovering/Resolving]
  - Injection site pain [Unknown]
  - Asthenia [Unknown]
  - Hunger [Unknown]
